FAERS Safety Report 6762628-3 (Version None)
Quarter: 2010Q2

REPORT INFORMATION
  Report Type: 
  Country: None (occurrence: None)
  Receive Date: 20100609
  Receipt Date: 20100601
  Transmission Date: 20101027
  Serious: Yes (Hospitalization)
  Sender: FDA-Public Use
  Company Number: GXKR2010JP06067

PATIENT
  Age: 57 Year
  Sex: Male
  Weight: 43 kg

DRUGS (6)
  1. CEFTRIAXONE SODIUM [Suspect]
     Indication: APPENDICITIS
     Dosage: 2 G/DAY
     Route: 042
     Dates: start: 20100410, end: 20100419
  2. CEFTRIAXONE SODIUM [Suspect]
     Indication: ENTERITIS
  3. OMEPRAL [Concomitant]
     Dosage: 40 MG, UNK
     Route: 042
     Dates: start: 20100410, end: 20100419
  4. PREDONINE [Concomitant]
  5. RINGER'S SOLUTION [Concomitant]
  6. VITAMEDIN INTRAVENOUS [Concomitant]

REACTIONS (3)
  - ALTERED STATE OF CONSCIOUSNESS [None]
  - DECREASED ACTIVITY [None]
  - DYSKINESIA [None]
